FAERS Safety Report 11026702 (Version 1)
Quarter: 2015Q2

REPORT INFORMATION
  Report Type: Spontaneous
  Country: HU (occurrence: HU)
  Receive Date: 20150414
  Receipt Date: 20150414
  Transmission Date: 20150821
  Serious: Yes (Hospitalization, Other)
  Sender: FDA-Public Use
  Company Number: HU-ELI_LILLY_AND_COMPANY-HU201504001056

PATIENT
  Age: 60 Year
  Sex: Female

DRUGS (1)
  1. ZYPADHERA [Suspect]
     Active Substance: OLANZAPINE PAMOATE
     Indication: PRODUCT USED FOR UNKNOWN INDICATION
     Dosage: 300 MG, OTHER
     Route: 030
     Dates: start: 20150226

REACTIONS (3)
  - Thrombosis [Unknown]
  - Lung disorder [Unknown]
  - Embolism [Unknown]

NARRATIVE: CASE EVENT DATE: 20150227
